FAERS Safety Report 10363993 (Version 1)
Quarter: 2014Q3

REPORT INFORMATION
  Report Type: Report from Study
  Country: BR (occurrence: BR)
  Receive Date: 20140805
  Receipt Date: 20140805
  Transmission Date: 20150326
  Serious: Yes (Other)
  Sender: FDA-Public Use
  Company Number: PHHY2014BR095995

PATIENT
  Sex: Female
  Weight: 39 kg

DRUGS (4)
  1. ACLASTA [Suspect]
     Active Substance: ZOLEDRONIC ACID
     Indication: OSTEOPOROSIS
     Dosage: UNK UKN, ONCE A YEAR
     Route: 042
     Dates: start: 201005
  2. ASPIRIN. [Concomitant]
     Active Substance: ASPIRIN
     Indication: VEIN DISORDER
     Dosage: 1 DF, DAILY
  3. CALCIUM D3 [Concomitant]
     Active Substance: CALCIUM\CHOLECALCIFEROL
     Dosage: UNK UKN, UNK
  4. DIOSMIN [Concomitant]
     Active Substance: DIOSMIN
     Indication: VEIN DISORDER
     Dosage: 1 DF, DAILY

REACTIONS (1)
  - Cataract [Recovering/Resolving]
